FAERS Safety Report 6929190-3 (Version None)
Quarter: 2010Q3

REPORT INFORMATION
  Report Type: 
  Country: None (occurrence: None)
  Receive Date: 20100817
  Receipt Date: 20100809
  Transmission Date: 20110219
  Serious: Yes (Hospitalization)
  Sender: FDA-Public Use
  Company Number: BR-AMGEN-QUU430841

PATIENT
  Sex: Female

DRUGS (4)
  1. GRANULOKINE [Suspect]
     Indication: NEUTROPENIA
     Route: 042
     Dates: start: 20100701, end: 20100802
  2. TAXOTERE [Concomitant]
  3. TETRACYCLINE [Concomitant]
  4. CYCLOPHOSPHAMIDE [Concomitant]

REACTIONS (5)
  - DYSPNOEA [None]
  - ERYTHEMA [None]
  - HYPOTENSION [None]
  - NAUSEA [None]
  - VOMITING [None]
